FAERS Safety Report 22523238 (Version 3)
Quarter: 2023Q4

REPORT INFORMATION
  Report Type: Report from Study
  Country: US (occurrence: US)
  Receive Date: 20230606
  Receipt Date: 20231016
  Transmission Date: 20240110
  Serious: No
  Sender: FDA-Public Use
  Company Number: US-ACADIA PHARMACEUTICALS INC.-ACA-2023-PIM-001861

PATIENT
  Sex: Female

DRUGS (20)
  1. NUPLAZID [Suspect]
     Active Substance: PIMAVANSERIN TARTRATE
     Indication: Parkinson^s disease psychosis
     Dosage: 34 MILLIGRAM, QD
     Route: 048
     Dates: start: 202305
  2. NUPLAZID [Suspect]
     Active Substance: PIMAVANSERIN TARTRATE
     Indication: Illness
  3. QUETIAPINE FUMARATE [Concomitant]
     Active Substance: QUETIAPINE FUMARATE
  4. ZOLOFT [Concomitant]
     Active Substance: SERTRALINE HYDROCHLORIDE
  5. NEURONTIN [Concomitant]
     Active Substance: GABAPENTIN
  6. SEROQUEL [Concomitant]
     Active Substance: QUETIAPINE FUMARATE
  7. VITAMIN B [Concomitant]
     Active Substance: VITAMIN B
  8. MIRAPEX [Concomitant]
     Active Substance: PRAMIPEXOLE DIHYDROCHLORIDE
  9. ASPIRIN [Concomitant]
     Active Substance: ASPIRIN
  10. CALCIUM [Concomitant]
     Active Substance: CALCIUM
  11. VITAMIN D NOS [Concomitant]
     Active Substance: VITAMIN D NOS
  12. KEPPRA [Concomitant]
     Active Substance: LEVETIRACETAM
  13. CARBIDOPA [Concomitant]
     Active Substance: CARBIDOPA
  14. AMANTADINE [Concomitant]
     Active Substance: AMANTADINE
  15. FOSAMAX [Concomitant]
     Active Substance: ALENDRONATE SODIUM
  16. SINEMET [Concomitant]
     Active Substance: CARBIDOPA\LEVODOPA
  17. ACETAMINOPHEN [Concomitant]
     Active Substance: ACETAMINOPHEN
  18. VITAMIN D3 [Concomitant]
     Active Substance: CHOLECALCIFEROL
  19. AMOXICILLIN [Concomitant]
     Active Substance: AMOXICILLIN
  20. CARBIDOPA LEVODOPA [Concomitant]
     Active Substance: CARBIDOPA\LEVODOPA

REACTIONS (8)
  - Fatigue [Recovered/Resolved]
  - Anxiety [Unknown]
  - Insomnia [Unknown]
  - Abnormal behaviour [Not Recovered/Not Resolved]
  - Asthenia [Not Recovered/Not Resolved]
  - Fall [Unknown]
  - Hallucination [Unknown]
  - Hallucination [Not Recovered/Not Resolved]
